FAERS Safety Report 8109110-9 (Version None)
Quarter: 2012Q1

REPORT INFORMATION
  Report Type: 
  Country: None (occurrence: None)
  Receive Date: 20120202
  Receipt Date: 20120105
  Transmission Date: 20120608
  Serious: No
  Sender: FDA-Public Use
  Company Number: US-AMGEN-USASP2012000766

PATIENT
  Age: 51 Year
  Sex: Female

DRUGS (1)
  1. ENBREL [Suspect]
     Indication: RHEUMATOID ARTHRITIS
     Dosage: 50 MG, QWK
     Dates: start: 20110106

REACTIONS (7)
  - OROPHARYNGEAL PAIN [None]
  - NASAL CONGESTION [None]
  - INJECTION SITE HAEMATOMA [None]
  - OCULAR HYPERAEMIA [None]
  - INJECTION SITE ERYTHEMA [None]
  - DRY MOUTH [None]
  - INJECTION SITE URTICARIA [None]
